FAERS Safety Report 7621400-2 (Version None)
Quarter: 2011Q3

REPORT INFORMATION
  Report Type: 
  Country: None (occurrence: None)
  Receive Date: 20110719
  Receipt Date: 20110713
  Transmission Date: 20111222
  Serious: Yes (Other)
  Sender: FDA-Public Use
  Company Number: FR-PFIZER INC-2011158029

PATIENT
  Age: 77 Year
  Sex: Female

DRUGS (4)
  1. CLINDAMYCIN HCL [Suspect]
     Indication: INFECTION
     Dosage: 600 MG, 3X/DAY
     Route: 048
     Dates: start: 20110610, end: 20110620
  2. BACTRIM DS [Suspect]
     Indication: INFECTION
     Dosage: 1 DF, 3X/DAY
     Route: 048
     Dates: start: 20110610, end: 20110620
  3. ZYVOX [Concomitant]
     Dosage: UNK
     Route: 042
  4. AZACTAM [Concomitant]
     Dosage: UNK
     Route: 042

REACTIONS (1)
  - RENAL FAILURE ACUTE [None]
